FAERS Safety Report 7823721-7 (Version None)
Quarter: 2011Q4

REPORT INFORMATION
  Report Type: 
  Country: None (occurrence: None)
  Receive Date: 20111019
  Receipt Date: 20111014
  Transmission Date: 20120403
  Serious: No
  Sender: FDA-Public Use
  Company Number: US-PFIZER INC-2011246949

PATIENT
  Age: 45 Year
  Sex: Female

DRUGS (2)
  1. EFFEXOR XR [Suspect]
     Indication: DEPRESSION
     Dosage: 150 MG, 1X/DAY
     Route: 048
  2. DARVOCET [Concomitant]
     Dosage: UNK, AS NEEDED

REACTIONS (3)
  - DEPRESSED MOOD [None]
  - SOMNOLENCE [None]
  - FEELING ABNORMAL [None]
